FAERS Safety Report 16995085 (Version 1)
Quarter: 2019Q4

REPORT INFORMATION
  Report Type: Spontaneous
  Country: US (occurrence: US)
  Receive Date: 20191105
  Receipt Date: 20191105
  Transmission Date: 20200122
  Serious: No
  Sender: FDA-Public Use
  Company Number: US-TEVA-2019-US-1131535

PATIENT
  Sex: Female

DRUGS (8)
  1. SIMVASTATIN. [Concomitant]
     Active Substance: SIMVASTATIN
  2. CENTRUM [Concomitant]
     Active Substance: VITAMINS
  3. OXYBUTYNIN. [Concomitant]
     Active Substance: OXYBUTYNIN CHLORIDE
  4. HYDROCHLOROT [Concomitant]
     Active Substance: HYDROCHLOROTHIAZIDE
  5. VITAMIN D3 [Concomitant]
     Active Substance: CHOLECALCIFEROL
  6. CALTRATE [Concomitant]
     Active Substance: CALCIUM CARBONATE
  7. RISEDRONATE [Concomitant]
     Active Substance: RISEDRONATE SODIUM
  8. COPAXONE [Suspect]
     Active Substance: GLATIRAMER ACETATE
     Indication: MULTIPLE SCLEROSIS
     Dosage: SYRINGE
     Route: 058
     Dates: start: 20190131

REACTIONS (1)
  - Injection site reaction [Not Recovered/Not Resolved]
